FAERS Safety Report 5322384-2 (Version None)
Quarter: 2007Q1

REPORT INFORMATION
  Report Type: 
  Country: None (occurrence: None)
  Receive Date: 20070220
  Receipt Date: 20070109
  Transmission Date: 20070707
  Serious: No
  Sender: FDA-Public Use
  Company Number: TPA2006A01900

PATIENT
  Sex: Female
  Weight: 66.2252 kg

DRUGS (6)
  1. ROZEREM [Suspect]
     Indication: INSOMNIA
     Dosage: PER ORAL
     Route: 048
  2. EFFEXOR XR [Concomitant]
  3. ZOCOR [Concomitant]
  4. SYNTHROID [Concomitant]
  5. LO/OVRAL [Concomitant]
  6. ALPRAZOLAM [Concomitant]

REACTIONS (1)
  - FEELING ABNORMAL [None]
